FAERS Safety Report 7156321-5 (Version None)
Quarter: 2010Q4

REPORT INFORMATION
  Report Type: 
  Country: None (occurrence: None)
  Receive Date: 20101105
  Receipt Date: 20100728
  Transmission Date: 20110411
  Serious: Yes (Hospitalization, Other)
  Sender: FDA-Public Use
  Company Number: 014665

PATIENT
  Sex: Female

DRUGS (1)
  1. CIMZIA [Suspect]
     Dosage: UNSPECIFIED, SUBCUTANEOUS
     Route: 058
     Dates: start: 20100220

REACTIONS (6)
  - ABDOMINAL PAIN [None]
  - DIARRHOEA [None]
  - PROCTALGIA [None]
  - SMALL INTESTINAL RESECTION [None]
  - VOMITING [None]
  - WEIGHT DECREASED [None]
